FAERS Safety Report 12839856 (Version 1)
Quarter: 2016Q4

REPORT INFORMATION
  Report Type: Spontaneous
  Country: GB (occurrence: GB)
  Receive Date: 20161012
  Receipt Date: 20161012
  Transmission Date: 20170207
  Serious: Yes (Hospitalization)
  Sender: FDA-Public Use
  Company Number: GB-TEVA-700990ACC

PATIENT
  Age: 85 Year
  Sex: Female

DRUGS (13)
  1. ADCAL-D3 [Concomitant]
     Active Substance: CALCIUM CARBONATE\CHOLECALCIFEROL
  2. PARACETAMOL [Concomitant]
     Active Substance: ACETAMINOPHEN
  3. AMLODIPINE [Concomitant]
     Active Substance: AMLODIPINE BESYLATE
  4. SIMVASTATIN. [Concomitant]
     Active Substance: SIMVASTATIN
  5. TRIMETHOPRIM. [Suspect]
     Active Substance: TRIMETHOPRIM
     Indication: URINARY TRACT INFECTION
     Dosage: 400 MILLIGRAM DAILY; PRESCRIBED FOR 5 DAYS
     Route: 048
     Dates: start: 20160712, end: 20160714
  6. ASPIRIN. [Concomitant]
     Active Substance: ASPIRIN
  7. CETIRIZINE [Concomitant]
     Active Substance: CETIRIZINE HYDROCHLORIDE
  8. TERBINAFINE. [Suspect]
     Active Substance: TERBINAFINE
     Indication: BODY TINEA
     Dosage: 250 MILLIGRAM DAILY;
     Route: 048
     Dates: start: 20160704, end: 20160714
  9. DERMOL [Concomitant]
     Active Substance: BENZALKONIUM CHLORIDE\CHLORHEXIDINE HYDROCHLORIDE\ISOPROPYL MYRISTATE\PARAFFIN
  10. GLUCOSAMINE [Concomitant]
     Active Substance: GLUCOSAMINE
  11. TIMODINE [Concomitant]
  12. GLYCERYL TRINITRATE [Concomitant]
     Active Substance: NITROGLYCERIN
  13. OMEPRAZOLE. [Concomitant]
     Active Substance: OMEPRAZOLE

REACTIONS (5)
  - Confusional state [Unknown]
  - Dermatitis allergic [Recovered/Resolved]
  - Eosinophil count increased [Unknown]
  - Circulatory collapse [Recovered/Resolved]
  - Disorientation [Unknown]

NARRATIVE: CASE EVENT DATE: 20160713
